FAERS Safety Report 21987548 (Version 1)
Quarter: 2023Q1

REPORT INFORMATION
  Report Type: Other
  Country: IT (occurrence: IT)
  Receive Date: 20230214
  Receipt Date: 20230214
  Transmission Date: 20230418
  Serious: Yes (Other)
  Sender: FDA-Public Use
  Company Number: IT-CELLTRION INC.-2023IT002810

PATIENT

DRUGS (12)
  1. RITUXIMAB [Suspect]
     Active Substance: RITUXIMAB
     Indication: Follicular lymphoma
     Dosage: UNK UNK, UNKNOWN FREQ.
     Dates: start: 20211001, end: 20211101
  2. RITUXIMAB [Suspect]
     Active Substance: RITUXIMAB
     Dosage: UNK UNK, UNKNOWN FREQ.
     Dates: start: 20210901, end: 20210930
  3. EPIRUBICIN [Suspect]
     Active Substance: EPIRUBICIN
     Indication: Follicular lymphoma
     Dosage: UNK UNK, UNKNOWN FREQ.
     Dates: start: 20211001, end: 20211101
  4. PREDNISONE [Suspect]
     Active Substance: PREDNISONE
     Indication: Follicular lymphoma
     Dosage: UNK UNK, UNKNOWN FREQ.
     Dates: start: 20210901, end: 20210930
  5. IFOSFAMIDE [Suspect]
     Active Substance: IFOSFAMIDE
     Indication: Follicular lymphoma
     Dosage: UNK UNK, UNKNOWN FREQ.
     Dates: start: 20211001, end: 20211101
  6. ETOPOSIDE [Suspect]
     Active Substance: ETOPOSIDE
     Indication: Follicular lymphoma
     Dosage: UNK
     Dates: start: 20211001, end: 20211101
  7. BENDAMUSTINE HYDROCHLORIDE [Suspect]
     Active Substance: BENDAMUSTINE HYDROCHLORIDE
     Indication: Follicular lymphoma
     Dosage: UNK UNK, CYCLIC (DOSAGE FORM: POWDER (EXCEPT DUSTING POWDER)) (DOSE FORM:POWDER (EXCEPT [DPO])
     Route: 042
     Dates: start: 20200201, end: 20200701
  8. DOXORUBICIN [Suspect]
     Active Substance: DOXORUBICIN
     Indication: Follicular lymphoma
     Dosage: UNK UNK, UNKNOWN FREQ./ADDITIONAL INFORMATION ON DRUG (CODED): OFF LABEL USE
     Dates: start: 20210901, end: 20210930
  9. CYCLOPHOSPHAMIDE [Suspect]
     Active Substance: CYCLOPHOSPHAMIDE
     Indication: Follicular lymphoma
     Dosage: UNK UNK, UNKNOWN FREQ
     Dates: start: 20210901, end: 20210930
  10. LENALIDOMIDE [Suspect]
     Active Substance: LENALIDOMIDE
     Indication: Follicular lymphoma
     Dosage: UNK UNK, UNKNOWN FREQ.
     Dates: start: 20220301, end: 20220331
  11. VINCRISTINE [Suspect]
     Active Substance: VINCRISTINE
     Indication: Follicular lymphoma
     Dosage: UNK UNK, UNKNOWN FREQ.
     Dates: start: 20210901, end: 20210930
  12. TAFASITAMAB-CXIX [Suspect]
     Active Substance: TAFASITAMAB-CXIX
     Indication: Follicular lymphoma
     Dosage: UNK UNK, UNKNOWN FREQ.
     Dates: start: 20220901, end: 20221201

REACTIONS (1)
  - Malignant neoplasm progression [Unknown]
